FAERS Safety Report 13177810 (Version 2)
Quarter: 2017Q1

REPORT INFORMATION
  Report Type: Report from Study
  Country: GB (occurrence: GB)
  Receive Date: 20170201
  Receipt Date: 20170223
  Transmission Date: 20170428
  Serious: Yes (Other)
  Sender: FDA-Public Use
  Company Number: GB-AMGEN-GBRCT2016176459

PATIENT
  Age: 76 Year
  Sex: Female
  Weight: 79.2 kg

DRUGS (8)
  1. PREDNISOLONE. [Concomitant]
     Active Substance: PREDNISOLONE
     Dosage: 70-80 MG, UNK
     Route: 048
     Dates: start: 20161103
  2. PEMBROLIZUMAB. [Suspect]
     Active Substance: PEMBROLIZUMAB
     Indication: MALIGNANT MELANOMA
     Dosage: UNK
     Route: 042
     Dates: start: 20160812, end: 20161013
  3. MOVICOL [Concomitant]
     Active Substance: POLYETHYLENE GLYCOL 3350\POTASSIUM CHLORIDE\SODIUM BICARBONATE\SODIUM CHLORIDE
     Dosage: 1 UNK, UNK
     Route: 048
  4. LIDOCAINE. [Concomitant]
     Active Substance: LIDOCAINE
     Dosage: 1 UNK, UNK
     Route: 061
     Dates: start: 20160804
  5. NAPROXEN. [Concomitant]
     Active Substance: NAPROXEN
     Dosage: 500 MG, UNK
     Route: 048
  6. TALIMOGENE LAHERPAREPVEC [Suspect]
     Active Substance: TALIMOGENE LAHERPAREPVEC
     Indication: MALIGNANT MELANOMA
     Dosage: UNK
     Route: 026
     Dates: start: 20160812, end: 20161013
  7. ZOPICLONE [Concomitant]
     Active Substance: ZOPICLONE
     Dosage: 3.7 MG, UNK
     Route: 048
     Dates: start: 20161109
  8. OMEPRAZOLE. [Concomitant]
     Active Substance: OMEPRAZOLE
     Dosage: 20-40 MG, UNK
     Route: 048
     Dates: start: 2016

REACTIONS (1)
  - Hepatitis [Not Recovered/Not Resolved]

NARRATIVE: CASE EVENT DATE: 20161208
